FAERS Safety Report 4721566-8 (Version None)
Quarter: 2005Q3

REPORT INFORMATION
  Report Type: 
  Country: None (occurrence: None)
  Receive Date: 20050721
  Receipt Date: 20041130
  Transmission Date: 20060218
  Serious: Yes (Hospitalization)
  Sender: FDA-Public Use
  Company Number: US-BRISTOL-MYERS SQUIBB COMPANY-12779377

PATIENT
  Age: 75 Year
  Sex: Male
  Weight: 95 kg

DRUGS (6)
  1. COUMADIN [Suspect]
     Indication: CARDIAC VALVE DISEASE
     Dosage: DAILY DOSE:  ALTERNATING 5 MILLIGRAMS W/7.5 MILLIGRAMS.
     Dates: start: 19850101
  2. ALOE VERA [Suspect]
  3. GLUCOPHAGE [Concomitant]
  4. AVACOR [Concomitant]
  5. TRICOR [Concomitant]
  6. DIGOXIN [Concomitant]

REACTIONS (2)
  - INTERNATIONAL NORMALISED RATIO DECREASED [None]
  - ULCER HAEMORRHAGE [None]
